FAERS Safety Report 9087777 (Version 1)
Quarter: 2013Q1

REPORT INFORMATION
  Report Type: Report from Study
  Country: US (occurrence: US)
  Receive Date: 20130201
  Receipt Date: 20130201
  Transmission Date: 20140127
  Serious: No
  Sender: FDA-Public Use
  Company Number: US-ABBOTT-12P-163-1020548-00

PATIENT
  Age: 56 Year
  Sex: Female

DRUGS (6)
  1. HUMIRA [Suspect]
     Indication: CROHN^S DISEASE
     Dosage: LOADING
     Dates: start: 20121201
  2. LEVEMIR [Concomitant]
     Indication: TYPE 2 DIABETES MELLITUS
     Dosage: DAILY
  3. NOVOLOG [Concomitant]
     Indication: DIABETES MELLITUS
     Dosage: DAILY
  4. SIMVASTATIN [Concomitant]
     Indication: PROPHYLAXIS
     Dosage: DAILY
  5. XIFAXAN [Concomitant]
     Indication: CROHN^S DISEASE
     Dosage: FOR 2 WEEKS
  6. OMEPRAZOLE [Concomitant]
     Indication: GASTROOESOPHAGEAL REFLUX DISEASE
     Dosage: DAILY

REACTIONS (1)
  - Rash [Recovered/Resolved]
